FAERS Safety Report 9834404 (Version 2)
Quarter: 2014Q1

REPORT INFORMATION
  Report Type: Spontaneous
  Country: US (occurrence: US)
  Receive Date: 20140122
  Receipt Date: 20140122
  Transmission Date: 20141002
  Serious: Yes (Other)
  Sender: FDA-Public Use
  Company Number: US-UCBSA-011773

PATIENT
  Age: 21 Year
  Sex: Male

DRUGS (3)
  1. CIMZIA [Suspect]
     Indication: CROHN^S DISEASE
     Dosage: 400 MG
     Route: 058
     Dates: start: 20090227, end: 2009
  2. CIMZIA [Suspect]
     Indication: CROHN^S DISEASE
     Route: 058
     Dates: start: 20090424
  3. CIMZIA [Suspect]
     Indication: CROHN^S DISEASE
     Route: 058
     Dates: start: 20131116

REACTIONS (9)
  - Splenomegaly [Unknown]
  - Tonsillitis [Unknown]
  - Pharyngitis [Unknown]
  - Infectious mononucleosis [Unknown]
  - Oropharyngeal pain [Unknown]
  - Rash [Unknown]
  - Lymphadenopathy [Unknown]
  - Abdominal pain upper [Unknown]
  - Inappropriate schedule of drug administration [Not Recovered/Not Resolved]
